FAERS Safety Report 25184123 (Version 1)
Quarter: 2025Q2

REPORT INFORMATION
  Report Type: Spontaneous
  Country: US (occurrence: US)
  Receive Date: 20250410
  Receipt Date: 20250410
  Transmission Date: 20250717
  Serious: Yes (Other)
  Sender: PFIZER
  Company Number: US-PFIZER INC-202500074644

PATIENT
  Sex: Female

DRUGS (1)
  1. GLUCOTROL XL [Suspect]
     Active Substance: GLIPIZIDE
     Indication: Diabetes mellitus
     Dosage: 5MG TWICE A DAY

REACTIONS (2)
  - Myocardial infarction [Unknown]
  - Off label use [Unknown]

NARRATIVE: CASE EVENT DATE: 20200101
